FAERS Safety Report 12400820 (Version 2)
Quarter: 2016Q2

REPORT INFORMATION
  Report Type: Spontaneous
  Country: US (occurrence: US)
  Receive Date: 20160525
  Receipt Date: 20160525
  Transmission Date: 20160815
  Serious: No
  Sender: FDA-Public Use
  Company Number: US-SA-2015SA127672

PATIENT
  Age: 85 Year
  Sex: Female

DRUGS (2)
  1. SOLOSTAR [Suspect]
     Active Substance: DEVICE
     Dates: start: 2014
  2. LANTUS SOLOSTAR [Suspect]
     Active Substance: INSULIN GLARGINE
     Indication: TYPE 2 DIABETES MELLITUS
     Dosage: DOSE:12AM/22 PM
     Route: 065
     Dates: start: 2014

REACTIONS (6)
  - Fall [Unknown]
  - Foot fracture [Unknown]
  - Chest injury [Unknown]
  - Drug administration error [Unknown]
  - Arthralgia [Unknown]
  - Ligament sprain [Unknown]

NARRATIVE: CASE EVENT DATE: 20150818
